FAERS Safety Report 25817624 (Version 1)
Quarter: 2025Q3

REPORT INFORMATION
  Report Type: Spontaneous
  Country: PR (occurrence: PR)
  Receive Date: 20250918
  Receipt Date: 20250918
  Transmission Date: 20251020
  Serious: Yes (Hospitalization)
  Sender: TEVA
  Company Number: PR-TEVA-VS-3373747

PATIENT
  Age: 76 Year
  Sex: Female

DRUGS (2)
  1. DIAZOXIDE [Suspect]
     Active Substance: DIAZOXIDE
     Indication: Hyperinsulinism
     Route: 065
  2. OCTREOTIDE [Suspect]
     Active Substance: OCTREOTIDE
     Indication: Hyperinsulinism
     Route: 065

REACTIONS (3)
  - Cardiac failure congestive [Unknown]
  - Drug intolerance [Unknown]
  - Cardiovascular disorder [Unknown]
